FAERS Safety Report 15909062 (Version 1)
Quarter: 2019Q1

REPORT INFORMATION
  Report Type: Report from Study
  Country: CO (occurrence: CO)
  Receive Date: 20190204
  Receipt Date: 20190204
  Transmission Date: 20190417
  Serious: Yes (Death)
  Sender: FDA-Public Use
  Company Number: CO-ACTELION-A-US2019-185820

PATIENT
  Age: 56 Year
  Sex: Male

DRUGS (1)
  1. VENTAVIS [Suspect]
     Active Substance: ILOPROST
     Indication: PULMONARY ARTERIAL HYPERTENSION
     Dosage: 5 MCG, Q4HR
     Route: 055
     Dates: start: 20160303, end: 20190125

REACTIONS (1)
  - Death [Fatal]

NARRATIVE: CASE EVENT DATE: 20190125
